FAERS Safety Report 11857603 (Version 1)
Quarter: 2015Q4

REPORT INFORMATION
  Report Type: Spontaneous
  Country: US (occurrence: None)
  Receive Date: 20151221
  Receipt Date: 20151221
  Transmission Date: 20160305
  Serious: No
  Sender: FDA-Public Use
  Company Number: None

PATIENT

DRUGS (1)
  1. LITHIUM CARBONATE ER 300MG GLENMARK [Suspect]
     Active Substance: LITHIUM CARBONATE

REACTIONS (2)
  - Product label confusion [None]
  - Circumstance or information capable of leading to medication error [None]
